FAERS Safety Report 25725461 (Version 1)
Quarter: 2025Q3

REPORT INFORMATION
  Report Type: Spontaneous
  Country: US (occurrence: US)
  Receive Date: 20250826
  Receipt Date: 20250826
  Transmission Date: 20251021
  Serious: Yes (Hospitalization)
  Sender: BRISTOL-MYERS SQUIBB COMPANY
  Company Number: US-BRISTOL-MYERS SQUIBB COMPANY-2025-117930

PATIENT
  Age: 61 Year
  Sex: Female

DRUGS (1)
  1. POMALYST [Suspect]
     Active Substance: POMALIDOMIDE
     Indication: Plasma cell myeloma
     Dosage: TAKE 1 CAPSULE (2MG) BY MOUTH DAILY ON DAYS 1 THROUGH 21 OF A 28 DAY CYCLE
     Route: 048

REACTIONS (1)
  - Conduction disorder [Recovering/Resolving]
